FAERS Safety Report 8152545-9 (Version None)
Quarter: 2012Q1

REPORT INFORMATION
  Report Type: 
  Country: None (occurrence: None)
  Receive Date: 20120221
  Receipt Date: 20120213
  Transmission Date: 20120608
  Serious: Yes (Hospitalization)
  Sender: FDA-Public Use
  Company Number: US-BRISTOL-MYERS SQUIBB COMPANY-16396897

PATIENT
  Sex: Female

DRUGS (2)
  1. HALDOL [Suspect]
     Dosage: SMALL DOSE
     Dates: start: 20110301
  2. ABILIFY [Suspect]
     Dosage: SMALL DOSE,DOSE INCREASED TO 30 MG
     Dates: start: 20110301

REACTIONS (4)
  - PSYCHOTIC BEHAVIOUR [None]
  - RESTLESSNESS [None]
  - AKATHISIA [None]
  - INSOMNIA [None]
